FAERS Safety Report 9422316 (Version 2)
Quarter: 2013Q3

REPORT INFORMATION
  Report Type: Spontaneous
  Country: US (occurrence: US)
  Receive Date: 20130726
  Receipt Date: 20130819
  Transmission Date: 20140515
  Serious: Yes (Hospitalization, Other)
  Sender: FDA-Public Use
  Company Number: US-AMGEN-USASP2012048083

PATIENT
  Age: 50 Year
  Sex: Male

DRUGS (3)
  1. ENBREL [Suspect]
     Indication: PSORIATIC ARTHROPATHY
     Dosage: 50MG TWICE A MONTH OR AS NEEDED
     Route: 058
     Dates: start: 19920101
  2. ENBREL [Suspect]
     Indication: PSORIASIS
     Dosage: UNK
     Route: 065
  3. METHADONE [Suspect]
     Indication: PRODUCT USED FOR UNKNOWN INDICATION
     Dosage: UNK
     Route: 065

REACTIONS (15)
  - Drug dependence [Not Recovered/Not Resolved]
  - Blood pressure abnormal [Recovered/Resolved]
  - Visual impairment [Not Recovered/Not Resolved]
  - Wheezing [Recovered/Resolved]
  - Feeling abnormal [Recovered/Resolved]
  - Pneumonia [Recovered/Resolved]
  - Fear [Not Recovered/Not Resolved]
  - Respiratory tract congestion [Not Recovered/Not Resolved]
  - Productive cough [Not Recovered/Not Resolved]
  - Musculoskeletal stiffness [Not Recovered/Not Resolved]
  - Joint stiffness [Not Recovered/Not Resolved]
  - Injection site pain [Not Recovered/Not Resolved]
  - Psoriasis [Not Recovered/Not Resolved]
  - Nasopharyngitis [Not Recovered/Not Resolved]
  - Lymphadenopathy [Not Recovered/Not Resolved]
